FAERS Safety Report 4711152-8 (Version None)
Quarter: 2005Q3

REPORT INFORMATION
  Report Type: 
  Country: None (occurrence: None)
  Receive Date: 20050708
  Receipt Date: 20050614
  Transmission Date: 20060218
  Serious: Yes (Other)
  Sender: FDA-Public Use
  Company Number: GBWYE775427JUN05

PATIENT
  Sex: Male

DRUGS (5)
  1. EFFEXOR XR [Suspect]
     Indication: DEPRESSION
     Dosage: 225MG, FREQUENCY NOT STATED TRANSPLACENTAL
     Route: 064
     Dates: start: 20040323
  2. EFFEXOR XR [Suspect]
     Indication: SCHIZOAFFECTIVE DISORDER
     Dosage: 225MG, FREQUENCY NOT STATED TRANSPLACENTAL
     Route: 064
     Dates: start: 20040323
  3. AMITRIPTYLINE HCL [Suspect]
  4. OLANZAPINE [Suspect]
  5. QUETIAPINE FUMARATE [Suspect]
     Dosage: 600 MG 1X PER 1 DAY TRANSPLACENTAL
     Route: 064
     Dates: start: 20040507

REACTIONS (4)
  - AGITATION NEONATAL [None]
  - DRUG EXPOSURE DURING PREGNANCY [None]
  - FEEDING DISORDER NEONATAL [None]
  - LARGE FOR DATES BABY [None]
